FAERS Safety Report 18706717 (Version 1)
Quarter: 2021Q1

REPORT INFORMATION
  Report Type: Spontaneous
  Country: US (occurrence: US)
  Receive Date: 20210106
  Receipt Date: 20210106
  Transmission Date: 20210419
  Serious: No
  Sender: FDA-Public Use
  Company Number: US-MYLANLABS-2020M1101550

PATIENT
  Sex: Female

DRUGS (1)
  1. GLATIRAMER [Suspect]
     Active Substance: GLATIRAMER
     Indication: MULTIPLE SCLEROSIS
     Dosage: 40 MILLIGRAM, 3XW
     Route: 058

REACTIONS (7)
  - Incorrect drug administration rate [Unknown]
  - Product administration error [Unknown]
  - Injection site swelling [Unknown]
  - Pain [Unknown]
  - Lymphadenopathy [Unknown]
  - Injection site pain [Unknown]
  - Needle issue [Unknown]
